FAERS Safety Report 7347334-9 (Version None)
Quarter: 2011Q1

REPORT INFORMATION
  Report Type: 
  Country: None (occurrence: None)
  Receive Date: 20110311
  Receipt Date: 20110303
  Transmission Date: 20110831
  Serious: Yes (Life-Threatening, Hospitalization)
  Sender: FDA-Public Use
  Company Number: US-ROCHE-760387

PATIENT
  Sex: Female
  Weight: 73 kg

DRUGS (18)
  1. ACTEMRA [Suspect]
     Route: 042
     Dates: start: 20110203
  2. ACTEMRA [Suspect]
     Route: 042
     Dates: start: 20101007, end: 20101007
  3. ACTEMRA [Suspect]
     Route: 042
     Dates: start: 20101104, end: 20101104
  4. ZOLOFT [Concomitant]
  5. ACTEMRA [Suspect]
     Route: 042
     Dates: start: 20101202, end: 20101202
  6. ACTEMRA [Suspect]
     Route: 042
     Dates: start: 20110106, end: 20110106
  7. CALCIUM [Concomitant]
  8. ACTEMRA [Suspect]
     Indication: RHEUMATOID ARTHRITIS
     Dosage: INFUSION
     Route: 042
     Dates: start: 20100517, end: 20100517
  9. ACTEMRA [Suspect]
     Route: 042
     Dates: start: 20100713, end: 20100713
  10. TRAMADOL [Concomitant]
     Indication: PAIN
  11. ACTEMRA [Suspect]
     Route: 042
     Dates: start: 20100615, end: 20100615
  12. ACTEMRA [Suspect]
     Route: 042
     Dates: start: 20100813, end: 20100813
  13. ACTEMRA [Suspect]
     Route: 042
     Dates: start: 20100909, end: 20100909
  14. METHOTREXATE [Concomitant]
  15. PREDNISONE TAB [Concomitant]
     Dates: start: 20060101
  16. FOLIC ACID [Concomitant]
  17. ETODOLAC [Concomitant]
     Indication: ANTIINFLAMMATORY THERAPY
  18. SEASONIQUE [Concomitant]
     Indication: CONTRACEPTION
     Dosage: DRUG:LO-SEASONIC
     Route: 048
     Dates: end: 20110206

REACTIONS (1)
  - PULMONARY EMBOLISM [None]
